FAERS Safety Report 5661457-1 (Version None)
Quarter: 2008Q1

REPORT INFORMATION
  Report Type: 
  Country: None (occurrence: None)
  Receive Date: 20080311
  Receipt Date: 20080225
  Transmission Date: 20080703
  Serious: Yes (Other)
  Sender: FDA-Public Use
  Company Number: AR-GENENTECH-256959

PATIENT
  Sex: Male

DRUGS (6)
  1. AVASTIN [Suspect]
     Indication: RECTAL CANCER
     Dosage: UNK, UNK
     Route: 042
     Dates: start: 20071101
  2. ETHAMSYLATE [Concomitant]
     Indication: DRUG USE FOR UNKNOWN INDICATION
  3. FLUOROURACIL [Concomitant]
     Indication: RECTAL CANCER
  4. FOLINIC ACID [Concomitant]
     Indication: RECTAL CANCER
  5. IRINOTECAN [Concomitant]
     Indication: RECTAL CANCER
  6. ENALAPRIL MALEATE [Concomitant]
     Indication: DRUG USE FOR UNKNOWN INDICATION

REACTIONS (2)
  - ANAEMIA [None]
  - HAEMORRHAGE [None]
